FAERS Safety Report 7577252-2 (Version None)
Quarter: 2011Q2

REPORT INFORMATION
  Report Type: 
  Country: None (occurrence: None)
  Receive Date: 20110628
  Receipt Date: 20110614
  Transmission Date: 20111010
  Serious: Yes (Hospitalization, Other)
  Sender: FDA-Public Use
  Company Number: US-BAYER-201027347NA

PATIENT
  Age: 23 Year
  Sex: Female
  Weight: 68.027 kg

DRUGS (10)
  1. PROAIR HFA [Concomitant]
     Dosage: UNK UNK, PRN
     Dates: start: 20080501
  2. FEXOFENADINE [Concomitant]
     Dosage: UNK UNK, PRN
     Route: 048
     Dates: start: 20070401, end: 20100501
  3. DEPAKOTE [Concomitant]
     Dosage: UNK
     Route: 048
     Dates: start: 20071001, end: 20100501
  4. LUNESTA [Concomitant]
     Dosage: UNK
     Route: 048
     Dates: start: 20061001, end: 20100501
  5. PAROXETINE HCL [Concomitant]
     Dosage: UNK
     Route: 048
     Dates: start: 20061001, end: 20080601
  6. NEO-POLYMYXIN [Concomitant]
     Dosage: UNK
     Route: 048
     Dates: start: 20080301
  7. YASMIN [Suspect]
     Route: 048
     Dates: start: 20070330, end: 20090401
  8. YASMIN [Suspect]
     Indication: CONTRACEPTION
     Route: 048
     Dates: start: 20060423, end: 20060913
  9. ALPRAZOLAM [Concomitant]
     Dosage: UNK
     Route: 048
     Dates: start: 20060801, end: 20110301
  10. DICYCLOMINE [Concomitant]
     Dosage: UNK
     Route: 048
     Dates: start: 20080523

REACTIONS (9)
  - CHOLECYSTITIS [None]
  - DIARRHOEA [None]
  - BILIARY DYSKINESIA [None]
  - LIVER DISORDER [None]
  - ABDOMINAL PAIN [None]
  - NAUSEA [None]
  - HEPATIC STEATOSIS [None]
  - GALLBLADDER DISORDER [None]
  - IRRITABLE BOWEL SYNDROME [None]
